FAERS Safety Report 6258113-8 (Version None)
Quarter: 2009Q3

REPORT INFORMATION
  Report Type: 
  Country: None (occurrence: None)
  Receive Date: 20090702
  Receipt Date: 20090623
  Transmission Date: 20100115
  Serious: Yes (Hospitalization, Other)
  Sender: FDA-Public Use
  Company Number: 2009AL004230

PATIENT
  Age: 16 Year
  Sex: Male

DRUGS (1)
  1. FLUOXETINE [Suspect]
     Indication: DEPRESSION
     Dosage: 20 MG; QD; PO
     Route: 048
     Dates: start: 20090504, end: 20090522

REACTIONS (5)
  - ABNORMAL BEHAVIOUR [None]
  - COMMUNICATION DISORDER [None]
  - DECREASED ACTIVITY [None]
  - FEELING ABNORMAL [None]
  - INSOMNIA [None]
